FAERS Safety Report 5136355-2 (Version None)
Quarter: 2006Q4

REPORT INFORMATION
  Report Type: 
  Country: None (occurrence: None)
  Receive Date: 20061027
  Receipt Date: 20061018
  Transmission Date: 20070319
  Serious: Yes (Hospitalization)
  Sender: FDA-Public Use
  Company Number: 2006CG01695

PATIENT
  Age: 22827 Day
  Sex: Male

DRUGS (5)
  1. NEXIUM [Suspect]
     Route: 048
     Dates: end: 20060906
  2. NEXIUM [Suspect]
     Route: 048
     Dates: start: 20060901
  3. MYAMBUTOL [Suspect]
     Indication: TUBERCULOSIS
     Route: 048
     Dates: start: 20060822
  4. RIFATER [Suspect]
     Indication: TUBERCULOSIS
     Route: 048
     Dates: start: 20060822, end: 20060921
  5. CIFLOX [Concomitant]

REACTIONS (2)
  - HAEMOLYTIC ANAEMIA [None]
  - TUBERCULOSIS [None]
